FAERS Safety Report 8130519-1 (Version None)
Quarter: 2012Q1

REPORT INFORMATION
  Report Type: 
  Country: None (occurrence: None)
  Receive Date: 20120210
  Receipt Date: 20120201
  Transmission Date: 20120608
  Serious: Yes (Hospitalization, Other)
  Sender: FDA-Public Use
  Company Number: US-ASTRAZENECA-2010SE09683

PATIENT
  Age: 59 Year
  Sex: Female

DRUGS (1)
  1. CRESTOR [Suspect]
     Indication: BLOOD CHOLESTEROL ABNORMAL
     Route: 048

REACTIONS (8)
  - CONVULSION [None]
  - BRAIN NEOPLASM [None]
  - DRUG DOSE OMISSION [None]
  - CEREBROVASCULAR ACCIDENT [None]
  - URINARY TRACT INFECTION [None]
  - AMNESIA [None]
  - MIGRAINE [None]
  - LUNG NEOPLASM MALIGNANT [None]
